FAERS Safety Report 19447778 (Version 1)
Quarter: 2021Q2

REPORT INFORMATION
  Report Type: Spontaneous
  Country: US (occurrence: US)
  Receive Date: 20210622
  Receipt Date: 20210622
  Transmission Date: 20210717
  Serious: Yes (Other)
  Sender: FDA-Public Use
  Company Number: US-HIKMA PHARMACEUTICALS USA INC.-US-H14001-21-02867

PATIENT
  Age: 14 Week
  Sex: Male

DRUGS (7)
  1. IMMUNOGLOBULIN [Concomitant]
     Indication: TRANSAMINASES INCREASED
     Dosage: 3.5 G TOTAL
     Route: 042
  2. IMMUNOGLOBULIN [Concomitant]
     Indication: SERUM FERRITIN INCREASED
     Dosage: UNKNOWN
     Route: 065
  3. ETOPOSIDE. [Suspect]
     Active Substance: ETOPOSIDE
     Indication: TRANSAMINASES INCREASED
     Dosage: UNKNOWN
     Route: 065
  4. CYCLOSPORIN A [Suspect]
     Active Substance: CYCLOSPORINE
     Indication: SERUM FERRITIN INCREASED
     Dosage: UNKNOWN
     Route: 065
  5. DEXAMETHASONE. [Suspect]
     Active Substance: DEXAMETHASONE
     Indication: TRANSAMINASES INCREASED
     Dosage: PULSE; 10 MG/M2
     Route: 065
  6. DEXAMETHASONE. [Suspect]
     Active Substance: DEXAMETHASONE
     Indication: SERUM FERRITIN INCREASED
     Dosage: UNKNOWN
     Route: 065
  7. ETOPOSIDE. [Suspect]
     Active Substance: ETOPOSIDE
     Indication: SERUM FERRITIN INCREASED

REACTIONS (1)
  - Anaemia [Unknown]
